FAERS Safety Report 10609725 (Version 7)
Quarter: 2015Q2

REPORT INFORMATION
  Report Type: Spontaneous
  Country: US (occurrence: US)
  Receive Date: 20141126
  Receipt Date: 20150624
  Transmission Date: 20150821
  Serious: Yes (Life-Threatening, Other)
  Sender: FDA-Public Use
  Company Number: US-ELI_LILLY_AND_COMPANY-US201405004224

PATIENT
  Age: 48 Year
  Sex: Female
  Weight: 70.3 kg

DRUGS (9)
  1. TRIAMCINOLONE ACETONIDE. [Concomitant]
     Active Substance: TRIAMCINOLONE ACETONIDE
     Dosage: UNK, TID
     Route: 065
  2. CYMBALTA [Suspect]
     Active Substance: DULOXETINE HYDROCHLORIDE
     Indication: NEURALGIA
  3. CYMBALTA [Suspect]
     Active Substance: DULOXETINE HYDROCHLORIDE
     Indication: BACK PAIN
  4. PHENTERMINE [Concomitant]
     Active Substance: PHENTERMINE
     Dosage: 18.75 MG, BID
     Route: 048
  5. GABAPENTIN. [Concomitant]
     Active Substance: GABAPENTIN
     Dosage: 600 MG, TID
     Route: 048
  6. INDERAL [Concomitant]
     Active Substance: PROPRANOLOL HYDROCHLORIDE
     Dosage: UNK, UNKNOWN
     Route: 065
  7. CYMBALTA [Suspect]
     Active Substance: DULOXETINE HYDROCHLORIDE
     Indication: PAIN IN EXTREMITY
     Dosage: 120MG/QD
     Route: 065
     Dates: start: 201002
  8. PHENTERMINE [Concomitant]
     Active Substance: PHENTERMINE
     Indication: WEIGHT DECREASED
     Dosage: 15 MG, EACH MORNING
     Route: 048
  9. CYMBALTA [Suspect]
     Active Substance: DULOXETINE HYDROCHLORIDE
     Indication: MERALGIA PARAESTHETICA

REACTIONS (30)
  - Panic attack [Not Recovered/Not Resolved]
  - Tension [Unknown]
  - Insomnia [Unknown]
  - Drug withdrawal syndrome [Not Recovered/Not Resolved]
  - Depression [Not Recovered/Not Resolved]
  - Paraesthesia [Not Recovered/Not Resolved]
  - Pain [Not Recovered/Not Resolved]
  - Agitation [Unknown]
  - Abnormal behaviour [Unknown]
  - Affect lability [Unknown]
  - Vertigo [Unknown]
  - Anxiety [Not Recovered/Not Resolved]
  - Paraesthesia [Unknown]
  - Feeling guilty [Unknown]
  - Nervousness [Unknown]
  - Frustration [Unknown]
  - Anger [Unknown]
  - Suicidal ideation [Unknown]
  - Increased appetite [Unknown]
  - Distractibility [Unknown]
  - Confusional state [Not Recovered/Not Resolved]
  - Psychotic disorder [Unknown]
  - Asthenia [Not Recovered/Not Resolved]
  - Weight increased [Unknown]
  - Dysphoria [Unknown]
  - Hyperaesthesia [Unknown]
  - Memory impairment [Unknown]
  - Self injurious behaviour [Unknown]
  - Aggression [Not Recovered/Not Resolved]
  - Intentional product misuse [Recovered/Resolved]

NARRATIVE: CASE EVENT DATE: 201210
